FAERS Safety Report 4282180-4 (Version None)
Quarter: 2004Q1

REPORT INFORMATION
  Report Type: 
  Country: None (occurrence: None)
  Receive Date: 20040130
  Receipt Date: 20040120
  Transmission Date: 20041129
  Serious: Yes (Hospitalization)
  Sender: FDA-Public Use
  Company Number: FR-BRISTOL-MYERS SQUIBB COMPANY-12482501

PATIENT
  Age: 16 Year
  Sex: Female

DRUGS (8)
  1. AMIKLIN INJ [Suspect]
     Route: 042
     Dates: start: 20031119, end: 20031121
  2. TAZOCILLINE [Suspect]
     Route: 042
     Dates: start: 20031119, end: 20031206
  3. TRIFLUCAN [Suspect]
     Dates: start: 20031207, end: 20031212
  4. VANCOMYCIN [Suspect]
     Route: 042
     Dates: start: 20031120, end: 20031212
  5. ROCEPHIN [Suspect]
     Route: 042
     Dates: start: 20031112, end: 20031119
  6. FLAGYL [Concomitant]
     Dosage: 12-NOV TO 19-NOV, 6-DEC TO 12-DEC, RESTARTED 16-DEC-2003
     Dates: start: 20031112
  7. TIENAM [Concomitant]
     Dosage: 6-DEC TO 12-DEC, RESTARTED 16-DEC-2003
     Dates: start: 20031206
  8. CIFLOX [Concomitant]
     Dosage: 7-DEC TO 12-DEC, RESTARTED 12-DEC-2003
     Dates: start: 20031207

REACTIONS (9)
  - ALANINE AMINOTRANSFERASE INCREASED [None]
  - ASPARTATE AMINOTRANSFERASE INCREASED [None]
  - CHOLESTASIS [None]
  - CYTOLYTIC HEPATITIS [None]
  - ESCHERICHIA INFECTION [None]
  - LEUKOPENIA [None]
  - NEUTROPENIA [None]
  - PYREXIA [None]
  - STREPTOCOCCAL INFECTION [None]
